FAERS Safety Report 5756318-3 (Version None)
Quarter: 2008Q2

REPORT INFORMATION
  Report Type: 
  Country: None (occurrence: None)
  Receive Date: 20080528
  Receipt Date: 20080528
  Transmission Date: 20081010
  Serious: Yes (Hospitalization, Other)
  Sender: FDA-Public Use
  Company Number: None

PATIENT
  Age: 36 Year
  Sex: Male
  Weight: 88.905 kg

DRUGS (1)
  1. CHANTIX [Suspect]
     Indication: SMOKING CESSATION THERAPY
     Dosage: 1 DAILY PO
     Route: 048
     Dates: start: 20060820, end: 20060820

REACTIONS (17)
  - ANXIETY [None]
  - BLOOD CHOLESTEROL INCREASED [None]
  - BLOOD TESTOSTERONE DECREASED [None]
  - CHEST PAIN [None]
  - COLONIC POLYP [None]
  - CONSTIPATION [None]
  - GASTROOESOPHAGEAL REFLUX DISEASE [None]
  - HEART RATE INCREASED [None]
  - HIATUS HERNIA [None]
  - HYPERTENSION [None]
  - HYPOTHALAMO-PITUITARY DISORDER [None]
  - MIGRAINE [None]
  - NECK PAIN [None]
  - PAIN [None]
  - PANIC ATTACK [None]
  - STOMACH DISCOMFORT [None]
  - TACHYCARDIA [None]
